FAERS Safety Report 10063678 (Version 2)
Quarter: 2014Q2

REPORT INFORMATION
  Report Type: Spontaneous
  Country: GB (occurrence: GB)
  Receive Date: 20140407
  Receipt Date: 20140407
  Transmission Date: 20141212
  Serious: Yes (Hospitalization)
  Sender: FDA-Public Use
  Company Number: PHFR2013GB007134

PATIENT
  Age: 61 Year
  Sex: Female
  Weight: 78.4 kg

DRUGS (7)
  1. CLOZARIL [Suspect]
     Dosage: UNK
     Route: 048
     Dates: start: 20131111, end: 20131129
  2. BISOPROLOL [Concomitant]
     Indication: HYPERTENSION
     Dosage: 25 MG, UNK
     Route: 048
  3. SODIUM VALPROATE [Concomitant]
     Dosage: 1400 MG, UNK
     Route: 048
  4. SERETIDE [Concomitant]
     Indication: ASTHMA
     Dosage: UNK UKN, UNK
     Route: 055
  5. SIMVASTATIN [Concomitant]
     Indication: HYPERLIPIDAEMIA
     Dosage: 40 MG, UNK
     Route: 048
  6. CO-AMOXICLAV [Concomitant]
     Dosage: UNK
  7. CLARITHROMYCIN [Concomitant]
     Dosage: UNK UKN, UNK
     Route: 048

REACTIONS (5)
  - Chronic obstructive pulmonary disease [Recovered/Resolved]
  - Urinary tract infection [Recovered/Resolved]
  - Lower respiratory tract infection [Recovered/Resolved]
  - Malaise [Unknown]
  - Lethargy [Unknown]
